FAERS Safety Report 5198963-2 (Version None)
Quarter: 2006Q4

REPORT INFORMATION
  Report Type: 
  Country: None (occurrence: None)
  Receive Date: 20060921
  Receipt Date: 20060410
  Transmission Date: 20070319
  Serious: Yes (Other)
  Sender: FDA-Public Use
  Company Number: PHEH2006US04725

PATIENT
  Age: 55 Year
  Sex: Female

DRUGS (6)
  1. ZELNORM [Suspect]
     Indication: IRRITABLE BOWEL SYNDROME
     Dosage: 6 MG, QD, ORAL
     Route: 048
     Dates: start: 20040519, end: 20060201
  2. ATENOLOL [Concomitant]
  3. DICYCLOMINE HCL [Concomitant]
  4. LANTUS [Concomitant]
  5. MIRALAX [Concomitant]
  6. VITAMINS (NO INGREDIENTS/SUBSTANCES) [Concomitant]

REACTIONS (12)
  - ASTHENIA [None]
  - DIARRHOEA [None]
  - MUSCLE ATROPHY [None]
  - MUSCLE DISORDER [None]
  - MUSCLE SPASMS [None]
  - MUSCULAR WEAKNESS [None]
  - MYALGIA [None]
  - NERVE CONDUCTION STUDIES ABNORMAL [None]
  - NERVE INJURY [None]
  - PALPITATIONS [None]
  - SYNCOPE [None]
  - TENDON DISORDER [None]
